FAERS Safety Report 8499172-1 (Version None)
Quarter: 2012Q2

REPORT INFORMATION
  Report Type: 
  Country: None (occurrence: None)
  Receive Date: 20120627
  Receipt Date: 20120614
  Transmission Date: 20120825
  Serious: Yes (Life-Threatening, Hospitalization)
  Sender: FDA-Public Use
  Company Number: 2012AP001252

PATIENT
  Age: 42 Year
  Sex: Female

DRUGS (4)
  1. OMEPRAZOLE [Suspect]
     Dosage: 20 MG; UNKNOWN; PO; BID
     Route: 048
  2. METRONIDAZOLE [Concomitant]
  3. FLUCLOXACILLIN (FLUCOXACILLIN) [Concomitant]
  4. BENZYDAMINE (BENZYDAMINE) [Concomitant]

REACTIONS (7)
  - DIARRHOEA [None]
  - THROMBOCYTOPENIA [None]
  - HAEMATEMESIS [None]
  - CONTUSION [None]
  - ABDOMINAL PAIN [None]
  - FULL BLOOD COUNT ABNORMAL [None]
  - BLOOD DISORDER [None]
